FAERS Safety Report 24247452 (Version 1)
Quarter: 2024Q3

REPORT INFORMATION
  Report Type: Spontaneous
  Country: FR (occurrence: FR)
  Receive Date: 20240826
  Receipt Date: 20240826
  Transmission Date: 20241017
  Serious: Yes (Hospitalization)
  Sender: AMGEN
  Company Number: None

PATIENT
  Age: 70 Year
  Sex: Female
  Weight: 75.6 kg

DRUGS (11)
  1. ARANESP [Suspect]
     Active Substance: DARBEPOETIN ALFA
     Indication: Anaemia
     Dosage: 60 MICROGRAM
     Route: 058
     Dates: start: 20240705, end: 20240705
  2. ARANESP [Suspect]
     Active Substance: DARBEPOETIN ALFA
     Dosage: 60 MICROGRAM
     Route: 058
     Dates: start: 20240719, end: 20240719
  3. IRBESARTAN [Suspect]
     Active Substance: IRBESARTAN
     Indication: Proteinuria
     Dosage: 75 MILLIGRAM, QD
     Route: 048
     Dates: start: 20240717
  4. BACTRIM [Suspect]
     Active Substance: SULFAMETHOXAZOLE\TRIMETHOPRIM
     Indication: Opportunistic infection prophylaxis
     Dosage: 1 DOSAGE FORM
     Route: 048
     Dates: start: 20240405, end: 20240806
  5. RITUXIMAB [Suspect]
     Active Substance: RITUXIMAB
     Indication: Renal vasculitis
     Dosage: 1000 MILLIGRAM
     Route: 040
     Dates: start: 20240411, end: 20240411
  6. RITUXIMAB [Suspect]
     Active Substance: RITUXIMAB
     Dosage: 1000 MILLIGRAM
     Route: 042
     Dates: start: 20240425
  7. AMLODIPINE [Concomitant]
     Active Substance: AMLODIPINE BESYLATE
     Indication: Hypertension
     Dosage: 10 MILLIGRAM, QD
     Route: 048
     Dates: start: 20240405
  8. FOLIC ACID [Concomitant]
     Active Substance: FOLIC ACID
     Indication: Vitamin supplementation
     Dosage: 5 MILLIGRAM, QD
     Route: 048
     Dates: start: 20240405
  9. VALACYCLOVIR HYDROCHLORIDE [Concomitant]
     Active Substance: VALACYCLOVIR HYDROCHLORIDE
     Indication: Opportunistic infection prophylaxis
     Dosage: 500 MILLIGRAM, QD
     Route: 048
     Dates: start: 20240405
  10. ATORVASTATIN [Concomitant]
     Active Substance: ATORVASTATIN
     Indication: Hypercholesterolaemia
     Dosage: 10 MILLIGRAM, QD
     Route: 048
     Dates: start: 20240405
  11. RAMIPRIL [Concomitant]
     Active Substance: RAMIPRIL
     Indication: Nephroprotective therapy
     Dosage: 2.5 MILLIGRAM, QD
     Route: 048
     Dates: start: 20240405, end: 20240421

REACTIONS (1)
  - Neutropenia [Recovering/Resolving]

NARRATIVE: CASE EVENT DATE: 20240731
